FAERS Safety Report 17227452 (Version 1)
Quarter: 2020Q1

REPORT INFORMATION
  Report Type: Report from Study
  Country: None (occurrence: CO)
  Receive Date: 20200103
  Receipt Date: 20200103
  Transmission Date: 20200409
  Serious: Yes (Death)
  Sender: FDA-Public Use
  Company Number: CO-ABBVIE-20K-036-3216784-00

PATIENT
  Age: 51 Year
  Sex: Male
  Weight: 60 kg

DRUGS (1)
  1. IMBRUVICA [Suspect]
     Active Substance: IBRUTINIB
     Indication: MANTLE CELL LYMPHOMA
     Route: 048
     Dates: start: 20191012, end: 20191212

REACTIONS (1)
  - Death [Fatal]

NARRATIVE: CASE EVENT DATE: 20191212
